FAERS Safety Report 10561365 (Version 1)
Quarter: 2014Q4

REPORT INFORMATION
  Report Type: Spontaneous
  Country: US (occurrence: US)
  Receive Date: 20141103
  Receipt Date: 20141103
  Transmission Date: 20150529
  Serious: No
  Sender: FDA-Public Use
  Company Number: US-PFIZER INC-2014302562

PATIENT
  Age: 80 Year
  Sex: Female
  Weight: 61 kg

DRUGS (6)
  1. ALLOPURINOL. [Concomitant]
     Active Substance: ALLOPURINOL
     Indication: GOUT
     Dosage: 300 MG, ONCE AT NIGHT
  2. KLONOPIN [Concomitant]
     Active Substance: CLONAZEPAM
     Indication: NEUROPATHY PERIPHERAL
  3. LYRICA [Suspect]
     Active Substance: PREGABALIN
     Dosage: 150 MG, 2X/DAY
     Dates: end: 2014
  4. FENOFIBRATE. [Concomitant]
     Active Substance: FENOFIBRATE
     Indication: BLOOD CHOLESTEROL ABNORMAL
     Dosage: 134 MG, 1X/DAY
  5. KLONOPIN [Concomitant]
     Active Substance: CLONAZEPAM
     Indication: SLEEP DISORDER
     Dosage: 0.5 MG, ONCE AT NIGHT
  6. LYRICA [Suspect]
     Active Substance: PREGABALIN
     Indication: NEUROPATHY PERIPHERAL
     Dosage: 400 MG A DAY

REACTIONS (3)
  - Pain in extremity [Unknown]
  - Pain [Unknown]
  - Insomnia [Unknown]

NARRATIVE: CASE EVENT DATE: 201410
